FAERS Safety Report 18478017 (Version 1)
Quarter: 2020Q4

REPORT INFORMATION
  Report Type: Spontaneous
  Country: US (occurrence: US)
  Receive Date: 20201108
  Receipt Date: 20201108
  Transmission Date: 20210114
  Serious: Yes (Hospitalization)
  Sender: FDA-Public Use
  Company Number: US-AUROBINDO-AUR-APL-2020-054414

PATIENT
  Age: 57 Year
  Sex: Male

DRUGS (15)
  1. BUPIVACAINE HYDROCHLORIDE. [Suspect]
     Active Substance: BUPIVACAINE HYDROCHLORIDE
     Dosage: 10 MILLIGRAM/MILILITER
     Route: 065
  2. FENTANYL. [Suspect]
     Active Substance: FENTANYL
     Dosage: 270 MICROGRAM, DAILY
     Route: 065
  3. CLONIDINE. [Suspect]
     Active Substance: CLONIDINE
     Indication: CHEST PAIN
     Dosage: 1000 MICROGRAM/MILLILITER
     Route: 065
  4. CLONIDINE. [Suspect]
     Active Substance: CLONIDINE
     Dosage: 2.75 MILLIGRAM, DAILY
  5. FENTANYL. [Suspect]
     Active Substance: FENTANYL
     Dosage: 1600 MICROGRAM
     Route: 065
  6. FENTANYL. [Suspect]
     Active Substance: FENTANYL
     Dosage: 1000 MICROGRAM/MILLILITER
     Route: 065
  7. CLONIDINE. [Suspect]
     Active Substance: CLONIDINE
     Dosage: 300 MICROGRAM/MILLILITER
     Route: 065
  8. BUPIVACAINE HYDROCHLORIDE. [Suspect]
     Active Substance: BUPIVACAINE HYDROCHLORIDE
     Dosage: 2 MILLIGRAM, DAILY
     Route: 065
  9. BACLOFEN. [Suspect]
     Active Substance: BACLOFEN
     Dosage: 41.25 MICROGRAM, DAILY
     Route: 065
  10. FENTANYL. [Suspect]
     Active Substance: FENTANYL
     Indication: CHEST PAIN
     Dosage: 50 MICROGRAM/HOUR
     Route: 065
  11. FENTANYL. [Suspect]
     Active Substance: FENTANYL
     Indication: CHEST PAIN
     Dosage: 450 MICROGRAM, DAILY
     Route: 065
  12. BACLOFEN. [Suspect]
     Active Substance: BACLOFEN
     Indication: CHEST PAIN
     Dosage: 150 MICROGRAM/MILLILITER
     Route: 065
  13. CLONIDINE. [Suspect]
     Active Substance: CLONIDINE
     Indication: CHEST PAIN
     Dosage: UNK
     Route: 065
  14. BUPIVACAINE HYDROCHLORIDE. [Suspect]
     Active Substance: BUPIVACAINE HYDROCHLORIDE
     Indication: CHEST PAIN
     Dosage: 20 MILLIGRAM/MILILITER
     Route: 065
  15. HYDROMORPHONE [Suspect]
     Active Substance: HYDROMORPHONE
     Indication: CHEST PAIN
     Dosage: 4 MILLIGRAM
     Route: 042

REACTIONS (5)
  - Agitation [Unknown]
  - Withdrawal syndrome [Unknown]
  - Nausea [Unknown]
  - Tremor [Unknown]
  - Pain [Unknown]
